FAERS Safety Report 13439413 (Version 1)
Quarter: 2017Q2

REPORT INFORMATION
  Report Type: Spontaneous
  Country: IT (occurrence: IT)
  Receive Date: 20170413
  Receipt Date: 20170413
  Transmission Date: 20170830
  Serious: Yes (Other)
  Sender: FDA-Public Use
  Company Number: IT-GILEAD-2017-0266883

PATIENT
  Age: 78 Year
  Sex: Female
  Weight: 52 kg

DRUGS (3)
  1. ZYDELIG [Suspect]
     Active Substance: IDELALISIB
     Indication: LYMPHOCYTIC LEUKAEMIA
     Dosage: 150 MG, BID
     Route: 048
     Dates: start: 20151104
  2. ZYDELIG [Suspect]
     Active Substance: IDELALISIB
     Dosage: 100 MG, BID
     Route: 048
  3. BACTRIM [Concomitant]
     Active Substance: SULFAMETHOXAZOLE\TRIMETHOPRIM
     Dosage: 800 MG, UNK
     Route: 048
     Dates: start: 20151104

REACTIONS (3)
  - Cognitive disorder [Unknown]
  - Pyrexia [Unknown]
  - Motor dysfunction [Unknown]

NARRATIVE: CASE EVENT DATE: 20170403
